FAERS Safety Report 13818611 (Version 1)
Quarter: 2017Q3

REPORT INFORMATION
  Report Type: Spontaneous
  Country: US (occurrence: US)
  Receive Date: 20170731
  Receipt Date: 20170731
  Transmission Date: 20171127
  Serious: No
  Sender: FDA-Public Use
  Company Number: US-TEIKOKU PHARMA USA-TPU2017-00315

PATIENT
  Age: 74 Year
  Sex: Male
  Weight: 90.8 kg

DRUGS (3)
  1. LIDOCAINE PATCH [Suspect]
     Active Substance: LIDOCAINE
     Indication: POST HERPETIC NEURALGIA
     Dosage: 12 HOURS ON
     Route: 061
     Dates: start: 201705
  2. VARIOUS MEDS [Concomitant]
  3. BETA BLOCKER [Concomitant]
     Active Substance: UNSPECIFIED INGREDIENT
     Indication: HYPERTENSION

REACTIONS (2)
  - Incorrect drug administration duration [Recovered/Resolved]
  - Application site rash [Recovering/Resolving]

NARRATIVE: CASE EVENT DATE: 201705
